FAERS Safety Report 4291166-5 (Version None)
Quarter: 2004Q1

REPORT INFORMATION
  Report Type: 
  Country: None (occurrence: None)
  Receive Date: 20040211
  Receipt Date: 20040206
  Transmission Date: 20041129
  Serious: Yes (Other)
  Sender: FDA-Public Use
  Company Number: 200410921US

PATIENT
  Sex: Male

DRUGS (7)
  1. LANTUS [Suspect]
     Indication: DIABETES MELLITUS NON-INSULIN-DEPENDENT
     Dosage: DOSE UNIT: UNITS
     Dates: end: 20030301
  2. GLEEVEC [Concomitant]
     Indication: LEUKAEMIA
     Dosage: DOSE: NOT PROVIDED
  3. COUMADIN [Concomitant]
     Dosage: DOSE: NOT PROVIDED
  4. CARDIOVASCULAR SYSTEM DRUGS [Concomitant]
     Dosage: DOSE: NOT PROVIDED
  5. LASIX [Concomitant]
     Dosage: DOSE: NOT PROVIDED
  6. POTASSIUM [Concomitant]
     Dosage: DOSE: NOT PROVIDED
  7. INTERFERON [Concomitant]
     Dosage: DOSE: NOT PROVIDED

REACTIONS (2)
  - MEDICATION ERROR [None]
  - SPEECH DISORDER [None]
